FAERS Safety Report 9485734 (Version 1)
Quarter: 2013Q3

REPORT INFORMATION
  Report Type: Spontaneous
  Country: US (occurrence: None)
  Receive Date: 20130821
  Receipt Date: 20130821
  Transmission Date: 20140515
  Serious: Yes (Life-Threatening, Hospitalization)
  Sender: FDA-Public Use
  Company Number: 1713747-2013-99934

PATIENT
  Sex: 0

DRUGS (6)
  1. UNKNOWN FRESNUIS SALINE (SODIUM CHLORIDE 0.9%) [Suspect]
     Indication: HAEMODIALYSIS
  2. FRESNIUS K2 HEMODIALYSIS MACHINE [Concomitant]
  3. UNKNOWN FRESNIUS TUBING [Concomitant]
  4. UNKNOWN FRESNIUS  DIALYZER [Concomitant]
  5. GRANUFLO [Concomitant]
  6. NATURALYTE [Concomitant]

REACTIONS (2)
  - Grand mal convulsion [None]
  - Unresponsive to stimuli [None]
